FAERS Safety Report 17229595 (Version 3)
Quarter: 2020Q4

REPORT INFORMATION
  Report Type: Spontaneous
  Country: US (occurrence: US)
  Receive Date: 20200103
  Receipt Date: 20201207
  Transmission Date: 20210113
  Serious: No
  Sender: FDA-Public Use
  Company Number: US-PFIZER INC-2019559011

PATIENT
  Age: 51 Year
  Sex: Female

DRUGS (1)
  1. IBRANCE [Suspect]
     Active Substance: PALBOCICLIB
     Indication: BREAST CANCER FEMALE
     Dosage: 125 MG, CYCLIC (ON FOR 21 DAYS THEN 7 DAYS OFF)
     Route: 048
     Dates: start: 202011

REACTIONS (4)
  - Decreased appetite [Unknown]
  - Product dose omission issue [Unknown]
  - Fatigue [Unknown]
  - Dizziness [Unknown]
